FAERS Safety Report 6981595-0 (Version None)
Quarter: 2010Q3

REPORT INFORMATION
  Report Type: 
  Country: None (occurrence: None)
  Receive Date: 20100914
  Receipt Date: 20100831
  Transmission Date: 20110219
  Serious: Yes (Death, Hospitalization)
  Sender: FDA-Public Use
  Company Number: GB-BAUSCH-2010BL004984

PATIENT
  Age: 10 Year
  Sex: Male

DRUGS (5)
  1. PREDNISOLONE [Suspect]
     Indication: LYMPHOPROLIFERATIVE DISORDER
     Dates: start: 20100101, end: 20100101
  2. CYCLOPHOSPHAMIDE [Suspect]
     Indication: LYMPHOPROLIFERATIVE DISORDER
     Dates: start: 20100101, end: 20100101
  3. VINCRISTINE [Suspect]
     Indication: LYMPHOPROLIFERATIVE DISORDER
     Dates: start: 20100101, end: 20100101
  4. ANTI-CD20 IMMUNOTHERAPY [Suspect]
     Indication: LYMPHOPROLIFERATIVE DISORDER
     Dates: start: 20100101, end: 20100101
  5. RITUXIMAB [Suspect]
     Indication: LYMPHOPROLIFERATIVE DISORDER
     Dates: start: 20100101, end: 20100101

REACTIONS (4)
  - EPSTEIN-BARR VIRUS ASSOCIATED LYMPHOPROLIFERATIVE DISORDER [None]
  - GASTROINTESTINAL ULCER [None]
  - HEPATOSPLENOMEGALY [None]
  - LYMPHADENOPATHY [None]
